FAERS Safety Report 4952625-2 (Version None)
Quarter: 2006Q1

REPORT INFORMATION
  Report Type: 
  Country: None (occurrence: None)
  Receive Date: 20060320
  Receipt Date: 20060306
  Transmission Date: 20060701
  Serious: Yes (Other)
  Sender: FDA-Public Use
  Company Number: SUS1-2006-00274

PATIENT
  Age: 4 Year
  Sex: Female
  Weight: 19.5 kg

DRUGS (1)
  1. ADDERALL XR 30 [Suspect]
     Indication: ATTENTION DEFICIT/HYPERACTIVITY DISORDER
     Dosage: 10 MG, 1X/DAY:  QD IN AM, ORAL
     Route: 048
     Dates: start: 20060101, end: 20060101

REACTIONS (1)
  - HOMICIDAL IDEATION [None]
